FAERS Safety Report 9186797 (Version 3)
Quarter: 2013Q2

REPORT INFORMATION
  Report Type: Report from Study
  Country: US (occurrence: US)
  Receive Date: 20130325
  Receipt Date: 20130404
  Transmission Date: 20140414
  Serious: No
  Sender: FDA-Public Use
  Company Number: US-VERTEX PHARMACEUTICALS INC.-2013-003978

PATIENT
  Age: 40 Year
  Sex: Female

DRUGS (8)
  1. VX-950 (TELAPREVIR) [Suspect]
     Indication: HEPATITIS C
     Dosage: 750 MG, TID
     Route: 048
     Dates: start: 20130311
  2. RIBAPAK [Suspect]
     Indication: HEPATITIS C
     Dosage: 600 MG, BID
     Route: 048
     Dates: start: 20130311
  3. PEGASYS [Suspect]
     Indication: HEPATITIS C
     Dosage: 180 ?G, QW
     Route: 058
     Dates: start: 20130311
  4. VITAMIN C [Concomitant]
     Dosage: 100 MG, QD
     Route: 048
  5. MULTIVITAMIN [Concomitant]
     Dosage: 1 DF, QD
     Route: 048
  6. LOSARTAN POTASSIUM [Concomitant]
     Dosage: 50 MG, QD
     Route: 048
  7. PROBIOTIC ACIDOPHILUS [Concomitant]
     Dosage: 1 DF, QD
     Route: 048
  8. MILK THISTLE [Concomitant]
     Dosage: 250 MG, QD
     Route: 048

REACTIONS (8)
  - Axillary mass [Unknown]
  - Axillary pain [Unknown]
  - Hypersensitivity [Unknown]
  - Contusion [Unknown]
  - Sinusitis [Unknown]
  - Oropharyngeal pain [Unknown]
  - Injection site bruising [Unknown]
  - Injection site pain [Unknown]
